FAERS Safety Report 16883634 (Version 2)
Quarter: 2019Q4

REPORT INFORMATION
  Report Type: Report from Study
  Country: DE (occurrence: DE)
  Receive Date: 20191004
  Receipt Date: 20191107
  Transmission Date: 20200122
  Serious: Yes (Other)
  Sender: FDA-Public Use
  Company Number: DE-ROCHE-2422053

PATIENT
  Sex: Male
  Weight: 85 kg

DRUGS (19)
  1. RANIBIZUMAB. [Suspect]
     Active Substance: RANIBIZUMAB
     Dosage: 0.5 MG, 1X
     Route: 031
     Dates: start: 20151125
  2. RANIBIZUMAB. [Suspect]
     Active Substance: RANIBIZUMAB
     Dosage: 0.5 MG, 1X
     Route: 031
     Dates: start: 20160525
  3. RANIBIZUMAB. [Suspect]
     Active Substance: RANIBIZUMAB
     Dosage: 0.5 MG, 1X
     Route: 031
     Dates: start: 20170214
  4. RANIBIZUMAB. [Suspect]
     Active Substance: RANIBIZUMAB
     Indication: NEOVASCULAR AGE-RELATED MACULAR DEGENERATION
     Dosage: 0.5 MG, 1X
     Route: 031
     Dates: start: 20150923
  5. RANIBIZUMAB. [Suspect]
     Active Substance: RANIBIZUMAB
     Dosage: 0.5 MG, 1X
     Route: 031
     Dates: start: 20160330
  6. RANIBIZUMAB. [Suspect]
     Active Substance: RANIBIZUMAB
     Dosage: 0.5 MG, 1X
     Route: 031
     Dates: start: 20160824
  7. RANIBIZUMAB. [Suspect]
     Active Substance: RANIBIZUMAB
     Dosage: 0.5 MG, 1X
     Route: 031
     Dates: start: 20161130
  8. RANIBIZUMAB. [Suspect]
     Active Substance: RANIBIZUMAB
     Dosage: 0.5 MG, 1X
     Route: 031
     Dates: start: 20170418, end: 20170515
  9. RANIBIZUMAB. [Suspect]
     Active Substance: RANIBIZUMAB
     Dosage: 0.5 MG, 1X
     Route: 031
     Dates: start: 20151028
  10. RANIBIZUMAB. [Suspect]
     Active Substance: RANIBIZUMAB
     Dosage: 0.5 MG, 1X
     Route: 031
     Dates: start: 20160622
  11. RANIBIZUMAB. [Suspect]
     Active Substance: RANIBIZUMAB
     Dosage: 0.5 MG, 1X
     Route: 031
     Dates: start: 20160921
  12. RANIBIZUMAB. [Suspect]
     Active Substance: RANIBIZUMAB
     Dosage: 0.5 MG, 1X
     Route: 031
     Dates: start: 20161026
  13. RANIBIZUMAB. [Suspect]
     Active Substance: RANIBIZUMAB
     Dosage: 0.5 MG, 1X
     Route: 031
     Dates: start: 20170104
  14. RANIBIZUMAB. [Suspect]
     Active Substance: RANIBIZUMAB
     Dosage: 0.5 MG, 1X
     Route: 031
     Dates: start: 20160720
  15. RANIBIZUMAB. [Suspect]
     Active Substance: RANIBIZUMAB
     Dosage: 0.5 MG, 1X
     Route: 031
     Dates: start: 20151223
  16. RANIBIZUMAB. [Suspect]
     Active Substance: RANIBIZUMAB
     Dosage: 0.5 MG, 1X
     Route: 031
     Dates: start: 20160120
  17. RANIBIZUMAB. [Suspect]
     Active Substance: RANIBIZUMAB
     Dosage: 0.5 MG, 1X
     Route: 031
     Dates: start: 20160427
  18. RANIBIZUMAB. [Suspect]
     Active Substance: RANIBIZUMAB
     Dosage: 0.5 MG, 1X
     Route: 031
     Dates: start: 20170314
  19. RANIBIZUMAB. [Suspect]
     Active Substance: RANIBIZUMAB
     Dosage: 0.5 MG, 1X
     Route: 031
     Dates: start: 20160217

REACTIONS (3)
  - Cystoid macular oedema [Recovering/Resolving]
  - Retinal oedema [Recovered/Resolved]
  - Cystoid macular oedema [Recovered/Resolved]

NARRATIVE: CASE EVENT DATE: 20161026
